FAERS Safety Report 7631373-4 (Version None)
Quarter: 2011Q3

REPORT INFORMATION
  Report Type: 
  Country: None (occurrence: None)
  Receive Date: 20110725
  Receipt Date: 20110718
  Transmission Date: 20111222
  Serious: Yes (Hospitalization)
  Sender: FDA-Public Use
  Company Number: CA-B.I. PHARMACEUTICALS,INC./RIDGEFIELD-2011-CN-00974CN

PATIENT
  Age: 80 Year

DRUGS (3)
  1. PRADAXA [Suspect]
     Indication: ATRIAL FIBRILLATION
     Dosage: 300 MG
  2. PRADAXA [Suspect]
     Indication: CEREBROVASCULAR ACCIDENT PROPHYLAXIS
  3. PREDNISONE [Concomitant]

REACTIONS (3)
  - BLOOD PRESSURE DECREASED [None]
  - HAEMORRHAGE [None]
  - HAEMATEMESIS [None]
